FAERS Safety Report 23738454 (Version 1)
Quarter: 2024Q2

REPORT INFORMATION
  Report Type: Spontaneous
  Country: FR (occurrence: FR)
  Receive Date: 20240412
  Receipt Date: 20240412
  Transmission Date: 20240716
  Serious: Yes (Other)
  Sender: FDA-Public Use
  Company Number: None

PATIENT
  Age: 63 Year
  Sex: Female
  Weight: 106.8 kg

DRUGS (2)
  1. COTRIMOXAZOLE [Suspect]
     Active Substance: SULFAMETHOXAZOLE\TRIMETHOPRIM
     Indication: Infection
     Dosage: COTRIMOXAZOLE TEVA 800 MG/160 MG,SULFAMETHOXAZOLE W/TRIMETHOPRIM
     Route: 048
     Dates: start: 20240111, end: 20240202
  2. IOMERON [Suspect]
     Active Substance: IOMEPROL
     Indication: Computerised tomogram
     Dosage: 350 (350 MG IODINE/ML),
     Route: 042
     Dates: start: 20240131, end: 20240131

REACTIONS (2)
  - Urticaria [Recovering/Resolving]
  - Vascular purpura [Not Recovered/Not Resolved]

NARRATIVE: CASE EVENT DATE: 20240202
